FAERS Safety Report 7685669-0 (Version None)
Quarter: 2011Q3

REPORT INFORMATION
  Report Type: 
  Country: None (occurrence: None)
  Receive Date: 20110816
  Receipt Date: 20110809
  Transmission Date: 20111222
  Serious: Yes (Other)
  Sender: FDA-Public Use
  Company Number: US-PFIZER INC-2011183538

PATIENT
  Sex: Female

DRUGS (1)
  1. REVATIO [Suspect]
     Indication: SOFT TISSUE DISORDER
     Dosage: 20 MG, 3X/DAY
     Dates: start: 20110505

REACTIONS (2)
  - FALL [None]
  - DIZZINESS [None]
